FAERS Safety Report 15884719 (Version 1)
Quarter: 2019Q1

REPORT INFORMATION
  Report Type: Spontaneous
  Country: FR (occurrence: FR)
  Receive Date: 20190129
  Receipt Date: 20190129
  Transmission Date: 20190417
  Serious: Yes (Hospitalization)
  Sender: FDA-Public Use
  Company Number: FR-RARE DISEASE THERAPEUTICS, INC.-2061871

PATIENT
  Age: 3 Year
  Sex: Male
  Weight: 12 kg

DRUGS (1)
  1. PURIXAN [Suspect]
     Active Substance: MERCAPTOPURINE
     Indication: ACUTE LYMPHOCYTIC LEUKAEMIA
     Route: 048
     Dates: start: 20180820, end: 20180827

REACTIONS (4)
  - Mucosal inflammation [Recovered/Resolved]
  - Product administration error [Recovered/Resolved]
  - Febrile bone marrow aplasia [Recovered/Resolved]
  - Overdose [None]

NARRATIVE: CASE EVENT DATE: 20180820
